FAERS Safety Report 5813876-8 (Version None)
Quarter: 2008Q3

REPORT INFORMATION
  Report Type: 
  Country: None (occurrence: None)
  Receive Date: 20080717
  Receipt Date: 20080715
  Transmission Date: 20090109
  Serious: Yes (Hospitalization)
  Sender: FDA-Public Use
  Company Number: AU-ABBOTT-08P-008-0463024-00

PATIENT
  Age: 39 Year
  Sex: Female

DRUGS (2)
  1. CLARITHROMYCIN [Suspect]
     Indication: CHRONIC SINUSITIS
     Route: 048
     Dates: start: 20070823, end: 20070902
  2. ATENOLOL [Concomitant]
     Indication: ESSENTIAL HYPERTENSION
     Route: 048

REACTIONS (6)
  - ARTHRALGIA [None]
  - GENERALISED OEDEMA [None]
  - HEADACHE [None]
  - PYREXIA [None]
  - RASH [None]
  - SERUM SICKNESS [None]
